FAERS Safety Report 6463455-7 (Version None)
Quarter: 2009Q4

REPORT INFORMATION
  Report Type: 
  Country: None (occurrence: None)
  Receive Date: 20091201
  Receipt Date: 20090930
  Transmission Date: 20100525
  Serious: Yes (Other)
  Sender: FDA-Public Use
  Company Number: US-AMGEN-QUU365677

PATIENT
  Sex: Female

DRUGS (8)
  1. ENBREL [Suspect]
     Indication: RHEUMATOID ARTHRITIS
     Route: 058
     Dates: start: 20070926
  2. FORTEO [Concomitant]
  3. CELEBREX [Concomitant]
  4. VITAMIN D [Concomitant]
  5. LIPITOR [Concomitant]
  6. VICODIN [Concomitant]
  7. COREG [Concomitant]
  8. OSCAL [Concomitant]

REACTIONS (1)
  - LUNG NEOPLASM MALIGNANT [None]
